FAERS Safety Report 9624000 (Version 1)
Quarter: 2013Q4

REPORT INFORMATION
  Report Type: Spontaneous
  Country: US (occurrence: US)
  Receive Date: 20131015
  Receipt Date: 20131015
  Transmission Date: 20140711
  Serious: No
  Sender: FDA-Public Use
  Company Number: US-UPSHER-SMITH LABORATORIES, INC.-12002472

PATIENT
  Age: 69 Year
  Sex: Female

DRUGS (10)
  1. KLOR-CON M [Suspect]
     Indication: BLOOD POTASSIUM DECREASED
     Dosage: 20 MEQ, BID
     Route: 048
     Dates: start: 201109, end: 201208
  2. PREMPRO [Concomitant]
     Dosage: UNK
  3. TRIAMTERENE AND HYDROCHLOROTHIAZIDE [Concomitant]
     Dosage: UNK
  4. CARVEDILOL [Concomitant]
     Dosage: UNK
  5. LISINOPRIL [Concomitant]
     Dosage: UNK
  6. BUPROPION [Concomitant]
     Dosage: UNK
  7. VENLAFAXINE [Concomitant]
     Dosage: UNK
  8. OMEPRAZOLE [Concomitant]
     Dosage: UNK
  9. TRAZODONE [Concomitant]
     Dosage: UNK
  10. CLONAZEPAM [Concomitant]
     Dosage: UNK

REACTIONS (3)
  - Choking [Recovered/Resolved]
  - Dysgeusia [Recovered/Resolved]
  - Retching [Recovered/Resolved]
